FAERS Safety Report 7075798-7 (Version None)
Quarter: 2010Q4

REPORT INFORMATION
  Report Type: 
  Country: None (occurrence: None)
  Receive Date: 20101101
  Receipt Date: 20101021
  Transmission Date: 20110411
  Serious: Yes (Hospitalization)
  Sender: FDA-Public Use
  Company Number: 2007BI020533

PATIENT
  Age: 48 Year
  Sex: Female

DRUGS (3)
  1. AVONEX [Suspect]
     Indication: MULTIPLE SCLEROSIS
     Route: 030
     Dates: start: 20030801, end: 20070901
  2. AVONEX [Suspect]
     Route: 030
     Dates: start: 20080301, end: 20100501
  3. AVONEX [Suspect]
     Route: 030
     Dates: start: 19961001

REACTIONS (15)
  - ANKLE FRACTURE [None]
  - BALANCE DISORDER [None]
  - CONTUSION [None]
  - DIZZINESS [None]
  - FALL [None]
  - FIBULA FRACTURE [None]
  - HYPOAESTHESIA [None]
  - LOWER LIMB FRACTURE [None]
  - PAIN [None]
  - POSTOPERATIVE RESPIRATORY DISTRESS [None]
  - PULMONARY EMBOLISM [None]
  - RESPIRATORY DISTRESS [None]
  - SLEEP APNOEA SYNDROME [None]
  - TIBIA FRACTURE [None]
  - VEIN DISORDER [None]
